FAERS Safety Report 9463705 (Version 2)
Quarter: 2013Q3

REPORT INFORMATION
  Report Type: Spontaneous
  Country: FI (occurrence: FI)
  Receive Date: 20130819
  Receipt Date: 20130819
  Transmission Date: 20140515
  Serious: Yes (Death, Other)
  Sender: FDA-Public Use
  Company Number: PHHY2013FI044845

PATIENT
  Age: 71 Year
  Sex: Male

DRUGS (4)
  1. AFINITOR [Suspect]
     Indication: RENAL CELL CARCINOMA
     Dosage: 10 MG, QD
     Dates: start: 20130128, end: 20130408
  2. CORTISONE [Concomitant]
  3. HYDROCORTISON [Concomitant]
     Dosage: 30 MG, DAILY
  4. SOMAC [Concomitant]
     Dosage: 40 MG, DAILY

REACTIONS (6)
  - Pulmonary tuberculosis [Fatal]
  - Renal cell carcinoma [Fatal]
  - Metastases to lung [Unknown]
  - General physical health deterioration [Unknown]
  - Leukocytosis [Unknown]
  - Pyrexia [Unknown]
